FAERS Safety Report 9550763 (Version 2)
Quarter: 2014Q3

REPORT INFORMATION
  Report Type: Report from Study
  Country: US (occurrence: US)
  Receive Date: 20130924
  Receipt Date: 20140918
  Transmission Date: 20150326
  Serious: Yes (Other)
  Sender: FDA-Public Use
  Company Number: US-SANOFI-AVENTIS-2013SA047888

PATIENT
  Age: 53 Year
  Sex: Female

DRUGS (1)
  1. AUBAGIO [Suspect]
     Active Substance: TERIFLUNOMIDE
     Indication: MULTIPLE SCLEROSIS
     Route: 048
     Dates: start: 20130429, end: 20140801

REACTIONS (24)
  - Malaise [Unknown]
  - Somnolence [Not Recovered/Not Resolved]
  - Migraine [Unknown]
  - Weight decreased [Not Recovered/Not Resolved]
  - Drug dose omission [Unknown]
  - Depression [Unknown]
  - Paraesthesia [Unknown]
  - Biliary tract disorder [Unknown]
  - Constipation [Not Recovered/Not Resolved]
  - Tachycardia [Not Recovered/Not Resolved]
  - Alopecia [Recovered/Resolved]
  - Nasopharyngitis [Unknown]
  - Headache [Recovering/Resolving]
  - Hepatic enzyme increased [Recovering/Resolving]
  - Diarrhoea [Unknown]
  - Gastritis [Unknown]
  - Condition aggravated [Unknown]
  - Lymphadenopathy [Unknown]
  - Fatigue [Not Recovered/Not Resolved]
  - Decreased appetite [Not Recovered/Not Resolved]
  - Pancreatic carcinoma [Unknown]
  - Pancreatic enzymes decreased [Unknown]
  - Pharyngitis [Unknown]
  - White blood cell count decreased [Unknown]

NARRATIVE: CASE EVENT DATE: 20130429
